FAERS Safety Report 9645852 (Version 1)
Quarter: 2013Q4

REPORT INFORMATION
  Report Type: Spontaneous
  Country: US (occurrence: None)
  Receive Date: 20131024
  Receipt Date: 20131024
  Transmission Date: 20140711
  Serious: Yes (Other)
  Sender: FDA-Public Use
  Company Number: None

PATIENT
  Age: 67 Year
  Sex: Female

DRUGS (1)
  1. AFINITOR 10MG NOVARTIS [Suspect]
     Route: 048
     Dates: start: 20130531, end: 20131009

REACTIONS (1)
  - Genital lesion [None]
